FAERS Safety Report 6408712-5 (Version None)
Quarter: 2009Q4

REPORT INFORMATION
  Report Type: 
  Country: None (occurrence: None)
  Receive Date: 20091021
  Receipt Date: 20091012
  Transmission Date: 20100525
  Serious: Yes (Hospitalization)
  Sender: FDA-Public Use
  Company Number: CH-JNJFOC-20091003572

PATIENT
  Age: 17 Year
  Sex: Male

DRUGS (17)
  1. HALDOL [Suspect]
     Route: 048
     Dates: start: 20090504
  2. HALDOL [Suspect]
     Indication: DRUG USE FOR UNKNOWN INDICATION
     Route: 048
     Dates: start: 20090504
  3. TEMESTA [Suspect]
     Route: 048
     Dates: start: 20090430
  4. TEMESTA [Suspect]
     Route: 048
     Dates: start: 20090430
  5. TEMESTA [Suspect]
     Route: 048
     Dates: start: 20090430
  6. TEMESTA [Suspect]
     Indication: DRUG USE FOR UNKNOWN INDICATION
     Route: 048
     Dates: start: 20090430
  7. VALPROATE SODIUM [Suspect]
     Route: 048
     Dates: start: 20090501
  8. VALPROATE SODIUM [Suspect]
     Route: 048
     Dates: start: 20090501
  9. VALPROATE SODIUM [Suspect]
     Indication: DRUG USE FOR UNKNOWN INDICATION
     Route: 048
     Dates: start: 20090501
  10. NOZINAN [Interacting]
     Indication: DRUG USE FOR UNKNOWN INDICATION
     Route: 048
     Dates: start: 20090505, end: 20090507
  11. CLOPIXOL [Suspect]
     Route: 048
     Dates: start: 20090427
  12. CLOPIXOL [Suspect]
     Route: 048
     Dates: start: 20090427
  13. CLOPIXOL [Suspect]
     Route: 048
     Dates: start: 20090427
  14. CLOPIXOL [Suspect]
     Route: 048
     Dates: start: 20090427
  15. CLOPIXOL [Suspect]
     Indication: DRUG USE FOR UNKNOWN INDICATION
     Route: 048
     Dates: start: 20090427
  16. FRAXIPARIN [Concomitant]
     Route: 058
     Dates: start: 20090429, end: 20090509
  17. AKINETON [Concomitant]
     Route: 048
     Dates: start: 20090504

REACTIONS (9)
  - ALTERED STATE OF CONSCIOUSNESS [None]
  - DRUG INTERACTION [None]
  - DRUG LEVEL INCREASED [None]
  - GENERAL PHYSICAL HEALTH DETERIORATION [None]
  - LEUKOCYTOSIS [None]
  - PNEUMONIA ASPIRATION [None]
  - PYREXIA [None]
  - TACHYCARDIA [None]
  - TACHYPNOEA [None]
